FAERS Safety Report 5338464-1 (Version None)
Quarter: 2007Q2

REPORT INFORMATION
  Report Type: 
  Country: None (occurrence: None)
  Receive Date: 20070322
  Receipt Date: 20060608
  Transmission Date: 20071010
  Serious: Yes (Other)
  Sender: FDA-Public Use
  Company Number: 200612074BCC

PATIENT
  Age: 87 Year
  Sex: Male
  Weight: 86.1834 kg

DRUGS (4)
  1. ALEVE [Suspect]
     Indication: DRUG USE FOR UNKNOWN INDICATION
     Dosage: 220 MG, ONCE, ORAL
     Route: 048
     Dates: start: 20060515
  2. COREG [Concomitant]
  3. HYDRALAZINE HCL [Concomitant]
  4. AMIODARONE HCL [Concomitant]

REACTIONS (2)
  - DYSPNOEA [None]
  - FLUSHING [None]
